FAERS Safety Report 6571394-6 (Version None)
Quarter: 2010Q1

REPORT INFORMATION
  Report Type: 
  Country: None (occurrence: None)
  Receive Date: 20100205
  Receipt Date: 20100127
  Transmission Date: 20100710
  Serious: Yes (Hospitalization)
  Sender: FDA-Public Use
  Company Number: DE-RANBAXY-2009RR-25675

PATIENT
  Age: 69 Year
  Sex: Male
  Weight: 84 kg

DRUGS (9)
  1. PARACETAMOL [Suspect]
     Indication: PROCEDURAL PAIN
     Dosage: 500 MG, TID
     Route: 048
     Dates: start: 20090226, end: 20090227
  2. VOLTAREN [Suspect]
     Indication: PROCEDURAL PAIN
     Dosage: UNK
     Route: 048
     Dates: start: 20090225, end: 20090227
  3. IBUPROFEN [Suspect]
     Indication: OSTEOARTHRITIS
     Dosage: UNK
     Route: 048
     Dates: start: 20070101, end: 20090220
  4. OMEP [Suspect]
     Indication: PROPHYLAXIS AGAINST GASTROINTESTINAL ULCER
     Dosage: 40 MG, QD
     Route: 048
     Dates: start: 20090225
  5. RAMIPRIL [Suspect]
     Indication: HYPERTENSION
     Dosage: UNK
     Route: 048
     Dates: start: 20000101
  6. BERLOSIN [Concomitant]
     Indication: PROCEDURAL PAIN
     Dosage: UNK
     Route: 048
     Dates: start: 20090226, end: 20090227
  7. CEFUROXIME [Concomitant]
     Indication: INFECTION PROPHYLAXIS
     Dosage: UNK
     Route: 041
     Dates: start: 20090224, end: 20090224
  8. FLOTRIN [Concomitant]
     Indication: BENIGN PROSTATIC HYPERPLASIA
     Dosage: UNK
     Route: 048
     Dates: start: 20050101
  9. NORSPAN [Concomitant]
     Indication: PROCEDURAL PAIN
     Dosage: UNK
     Route: 062
     Dates: start: 20090224, end: 20090302

REACTIONS (1)
  - PANCREATITIS [None]
